FAERS Safety Report 9557727 (Version 1)
Quarter: 2013Q3

REPORT INFORMATION
  Report Type: Spontaneous
  Country: US (occurrence: None)
  Receive Date: 20130724
  Receipt Date: 20130724
  Transmission Date: 20140515
  Serious: Yes (Other)
  Sender: FDA-Public Use
  Company Number: PHEH2012US016385

PATIENT
  Age: 40 Year
  Sex: Female

DRUGS (1)
  1. GLEEVEC (IMATINIB) UNKNOWN [Suspect]
     Indication: CHRONIC LEUKAEMIA
     Route: 048

REACTIONS (2)
  - Neoplasm progression [None]
  - Malignant neoplasm progression [None]
